FAERS Safety Report 5040198-8 (Version None)
Quarter: 2006Q2

REPORT INFORMATION
  Report Type: 
  Country: None (occurrence: None)
  Receive Date: 20060630
  Receipt Date: 20060626
  Transmission Date: 20061013
  Serious: Yes (Disabling)
  Sender: FDA-Public Use
  Company Number: US-MERCK-0606USA04864

PATIENT
  Age: 81 Year
  Sex: Male

DRUGS (5)
  1. ZETIA [Suspect]
     Indication: BLOOD CHOLESTEROL INCREASED
     Route: 048
     Dates: start: 20050101
  2. FLOMAX (MORNIFLUMATE) [Concomitant]
     Route: 065
  3. VASOTEC [Concomitant]
     Route: 048
  4. FLUTAMIDE [Concomitant]
     Route: 065
  5. LIPITOR [Suspect]
     Route: 065
     Dates: end: 20050601

REACTIONS (2)
  - FALL [None]
  - MUSCULAR WEAKNESS [None]
